FAERS Safety Report 22606202 (Version 1)
Quarter: 2023Q2

REPORT INFORMATION
  Report Type: Spontaneous
  Country: US (occurrence: US)
  Receive Date: 20230615
  Receipt Date: 20230615
  Transmission Date: 20230721
  Serious: No
  Sender: FDA-Public Use
  Company Number: US-GLAXOSMITHKLINE-USCH2023AMR027357

PATIENT
  Sex: Female

DRUGS (7)
  1. TERBINAFINE HYDROCHLORIDE [Suspect]
     Active Substance: TERBINAFINE HYDROCHLORIDE
     Indication: Psoriasis
     Dosage: UNK
  2. VITAMINS [Suspect]
     Active Substance: VITAMINS
     Indication: Psoriasis
     Dosage: UNK
  3. BETAMETHASONE [Suspect]
     Active Substance: BETAMETHASONE
     Indication: Psoriasis
     Dosage: UNK
  4. ALCOHOL [Suspect]
     Active Substance: ALCOHOL
     Indication: Psoriasis
     Dosage: UNK
  5. LIDOCAINE [Suspect]
     Active Substance: LIDOCAINE
     Indication: Psoriasis
     Dosage: UNK
  6. EPINEPHRINE [Suspect]
     Active Substance: EPINEPHRINE
     Indication: Psoriasis
     Dosage: UNK
  7. HALOPERIDOL [Suspect]
     Active Substance: HALOPERIDOL
     Indication: Psoriasis
     Dosage: UNK

REACTIONS (7)
  - Rash [Unknown]
  - Skin fissures [Unknown]
  - Superficial inflammatory dermatosis [Unknown]
  - Pustular psoriasis [Unknown]
  - Tinea pedis [Unknown]
  - Hyperkeratosis [Unknown]
  - Drug ineffective [Unknown]
